FAERS Safety Report 10044320 (Version 1)
Quarter: 2014Q1

REPORT INFORMATION
  Report Type: Spontaneous
  Country: US (occurrence: US)
  Receive Date: 20140328
  Receipt Date: 20140328
  Transmission Date: 20141002
  Serious: Yes (Hospitalization, Other)
  Sender: FDA-Public Use
  Company Number: US-PFIZER INC-2014085455

PATIENT
  Sex: Female

DRUGS (8)
  1. LYRICA [Suspect]
     Dosage: 100 MG, 3X/DAY
     Route: 048
     Dates: end: 201401
  2. CELEBREX [Suspect]
     Dosage: UNK
     Dates: end: 201402
  3. AMITRIPTYLINE [Concomitant]
     Dosage: UNK
  4. METOPROLOL [Concomitant]
     Dosage: UNK
  5. METHOCARBAMOL [Concomitant]
     Dosage: UNK
  6. SYNTHROID [Concomitant]
     Dosage: UNK
  7. PERCOCET [Concomitant]
     Dosage: UNK
  8. NEXIUM [Concomitant]
     Dosage: UNK

REACTIONS (5)
  - Gallbladder disorder [Unknown]
  - Drug withdrawal syndrome [Unknown]
  - Malaise [Unknown]
  - Gastritis [Unknown]
  - Nausea [Unknown]
